FAERS Safety Report 17861149 (Version 1)
Quarter: 2020Q2

REPORT INFORMATION
  Report Type: Spontaneous
  Country: DE (occurrence: DE)
  Receive Date: 20200604
  Receipt Date: 20200604
  Transmission Date: 20200714
  Serious: Yes (Hospitalization)
  Sender: FDA-Public Use
  Company Number: DE-UCBSA-2020022150

PATIENT
  Age: 13 Year
  Sex: Male
  Weight: 55 kg

DRUGS (2)
  1. BUCCOLAM [Concomitant]
     Active Substance: MIDAZOLAM HYDROCHLORIDE
     Indication: SEIZURE
     Dosage: 10 MG
     Route: 002
  2. LEVETIRACETAM. [Suspect]
     Active Substance: LEVETIRACETAM
     Indication: EPILEPSY
     Dosage: UNK
     Route: 048

REACTIONS (4)
  - Anticonvulsant drug level below therapeutic [Recovered/Resolved]
  - Treatment noncompliance [Unknown]
  - Seizure [Recovered/Resolved]
  - Product administration error [Unknown]

NARRATIVE: CASE EVENT DATE: 202001
